FAERS Safety Report 6345999-1 (Version None)
Quarter: 2009Q3

REPORT INFORMATION
  Report Type: 
  Country: None (occurrence: None)
  Receive Date: 20090909
  Receipt Date: 20090831
  Transmission Date: 20100115
  Serious: Yes (Hospitalization, Other)
  Sender: FDA-Public Use
  Company Number: US-AMGEN-QUU362557

PATIENT
  Sex: Female

DRUGS (2)
  1. ENBREL [Suspect]
     Indication: PSORIATIC ARTHROPATHY
     Dates: start: 20040415
  2. ENBREL [Suspect]
     Indication: PSORIASIS

REACTIONS (6)
  - CELLULITIS [None]
  - CORONARY ARTERIAL STENT INSERTION [None]
  - PSORIASIS [None]
  - PSORIATIC ARTHROPATHY [None]
  - STAPHYLOCOCCAL INFECTION [None]
  - VASCULAR OPERATION [None]
